FAERS Safety Report 24592583 (Version 1)
Quarter: 2024Q4

REPORT INFORMATION
  Report Type: Spontaneous
  Country: US (occurrence: US)
  Receive Date: 20241108
  Receipt Date: 20241108
  Transmission Date: 20250115
  Serious: Yes (Hospitalization, Other)
  Sender: BAYER HEALTHCARE LLC
  Company Number: US-BAYER-2024A158872

PATIENT
  Sex: Male
  Weight: 77 kg

DRUGS (6)
  1. ALEVE [Suspect]
     Active Substance: NAPROXEN SODIUM
     Indication: Pain in extremity
  2. VITAMIN K [Concomitant]
     Active Substance: PHYTONADIONE
  3. KCENTRA [Concomitant]
     Active Substance: COAGULATION FACTOR IX HUMAN\COAGULATION FACTOR VII HUMAN\COAGULATION FACTOR X HUMAN\PROTEIN C\PROTEI
  4. LATANOPROST [Concomitant]
     Active Substance: LATANOPROST
  5. PANTOPRAZOLE [Concomitant]
     Active Substance: PANTOPRAZOLE
     Dosage: 40 MG, QD
     Route: 048
  6. TAFAMIDIS [Concomitant]
     Active Substance: TAFAMIDIS
     Dosage: 61 MG, QD
     Route: 048

REACTIONS (6)
  - Haematemesis [None]
  - Melaena [None]
  - Asthenia [None]
  - Dizziness [None]
  - Abdominal pain [None]
  - Incorrect product administration duration [None]

NARRATIVE: CASE EVENT DATE: 20241031
